FAERS Safety Report 6811403-X (Version None)
Quarter: 2010Q2

REPORT INFORMATION
  Report Type: 
  Country: None (occurrence: None)
  Receive Date: 20100630
  Receipt Date: 20100504
  Transmission Date: 20101027
  Serious: No
  Sender: FDA-Public Use
  Company Number: US-AMGEN-KDL410437

PATIENT
  Sex: Female

DRUGS (5)
  1. PROCRIT [Suspect]
     Indication: DRUG USE FOR UNKNOWN INDICATION
     Dates: start: 20000101
  2. GLIPIZIDE [Concomitant]
  3. SOTALOL HCL [Concomitant]
  4. UNSPECIFIED ALLERGY MEDICATION [Concomitant]
  5. ZYRTEC [Concomitant]

REACTIONS (3)
  - ASTHENIA [None]
  - FATIGUE [None]
  - FEELING COLD [None]
